FAERS Safety Report 11605328 (Version 2)
Quarter: 2015Q4

REPORT INFORMATION
  Report Type: Spontaneous
  Country: MY (occurrence: MY)
  Receive Date: 20151007
  Receipt Date: 20151014
  Transmission Date: 20160304
  Serious: Yes (Disabling)
  Sender: FDA-Public Use
  Company Number: PHHY2015MY116865

PATIENT
  Age: 8 Year
  Sex: Female

DRUGS (4)
  1. EXJADE [Suspect]
     Active Substance: DEFERASIROX
     Indication: THALASSAEMIA BETA
     Dosage: 375 MG, (20 MG/KG)
     Route: 065
     Dates: start: 201403
  2. EXJADE [Suspect]
     Active Substance: DEFERASIROX
     Dosage: 750 MG, QD (34MG/KG/D)
     Route: 065
     Dates: start: 201504
  3. EXJADE [Suspect]
     Active Substance: DEFERASIROX
     Dosage: 500 MG, (28 MG/KG)
     Route: 065
     Dates: start: 201410
  4. FOLATE [Concomitant]
     Active Substance: FOLATE SODIUM
     Indication: PRODUCT USED FOR UNKNOWN INDICATION
     Dosage: 5 MG
     Route: 065

REACTIONS (1)
  - Deafness neurosensory [Not Recovered/Not Resolved]

NARRATIVE: CASE EVENT DATE: 201503
